FAERS Safety Report 4329904-5 (Version None)
Quarter: 2004Q1

REPORT INFORMATION
  Report Type: 
  Country: None (occurrence: None)
  Receive Date: 20040329
  Receipt Date: 20031202
  Transmission Date: 20041129
  Serious: No
  Sender: FDA-Public Use
  Company Number: 03P-163-0239916-00

PATIENT
  Age: 52 Year
  Sex: Male

DRUGS (8)
  1. HUMIRA [Suspect]
     Indication: RHEUMATOID ARTHRITIS
     Dosage: 40 MG, 1 IN 2 WK, SUBCUTANEOUS
     Route: 058
     Dates: start: 20031001
  2. IMIGLUCERASE [Concomitant]
  3. RABEPRAZOLE SODIUM [Concomitant]
  4. HYZAAR [Concomitant]
  5. METHYLPREDNISOLONE [Concomitant]
  6. DIAZEPAM [Concomitant]
  7. PROPACET 100 [Concomitant]
  8. HYDROCODONE [Concomitant]

REACTIONS (4)
  - EYE IRRITATION [None]
  - RASH GENERALISED [None]
  - RASH PRURITIC [None]
  - URTICARIA [None]
